FAERS Safety Report 6772164-6 (Version None)
Quarter: 2010Q2

REPORT INFORMATION
  Report Type: 
  Country: None (occurrence: None)
  Receive Date: 20100616
  Receipt Date: 20060913
  Transmission Date: 20101027
  Serious: No
  Sender: FDA-Public Use
  Company Number: PHFR2006GB02813

PATIENT
  Sex: Female

DRUGS (1)
  1. GLEEVEC [Suspect]
     Dosage: FOETAL DRUG EXPOSURE VIA FATHER

REACTIONS (1)
  - DRUG EXPOSURE DURING PREGNANCY [None]
